FAERS Safety Report 7993028-6 (Version None)
Quarter: 2011Q4

REPORT INFORMATION
  Report Type: 
  Country: None (occurrence: None)
  Receive Date: 20111219
  Receipt Date: 20111209
  Transmission Date: 20120403
  Serious: Yes (Life-Threatening, Hospitalization)
  Sender: FDA-Public Use
  Company Number: US-ROCHE-1016817

PATIENT
  Age: 57 Year
  Sex: Female
  Weight: 51.5 kg

DRUGS (6)
  1. PACLITAXEL [Suspect]
     Indication: OESOPHAGEAL ADENOCARCINOMA
     Dosage: IV OVER 1 HR ON DAYS 1, 8, 15, 22, 29 AND 36LAST DOSE PRIOR TO SAE: 31/OCT/2011).
     Dates: start: 20111003
  2. HERCEPTIN [Suspect]
     Indication: OESOPHAGEAL ADENOCARCINOMA
     Dosage: IV OVER 90 MIN ON DAY 1LAST DOSE PRIOR TO SAE: 31/OCT/2011).
     Dates: start: 20111003
  3. HERCEPTIN [Suspect]
     Dosage: IV OVER 30-90 MIN ON DAY 1, MAINTENANCE THERAPY CYCLE 21
  4. HERCEPTIN [Suspect]
     Dosage: IV OVER 30-90 MIN ON DAY 57
  5. CARBOPLATIN [Suspect]
     Indication: OESOPHAGEAL ADENOCARCINOMA
     Dosage: IV OVER 1 HR ON DAYS 1, 8, 15, 22, 29 AND 36LAST DOSE PRIOR TO SAE: 31/OCT/2011).
  6. HERCEPTIN [Suspect]
     Dosage: IV OVER 30-60 MIN ON DAYS 8, 15, 22, 29 AND 36

REACTIONS (2)
  - SEPSIS [None]
  - HYPERGLYCAEMIA [None]
